FAERS Safety Report 14241690 (Version 2)
Quarter: 2017Q4

REPORT INFORMATION
  Report Type: Spontaneous
  Country: NL (occurrence: NL)
  Receive Date: 20171201
  Receipt Date: 20171215
  Transmission Date: 20180321
  Serious: Yes (Congenital Anomaly, Other)
  Sender: FDA-Public Use
  Company Number: NL-009507513-1711NLD011096

PATIENT
  Age: 1 Day
  Sex: Female
  Weight: 1.3 kg

DRUGS (1)
  1. PREGNYL [Suspect]
     Active Substance: CHORIOGONADOTROPIN ALFA
     Dosage: STRENGTH REPORTED AS 5000 IE
     Route: 064
     Dates: start: 2008

REACTIONS (6)
  - Pulmonary valve stenosis [Unknown]
  - Low birth weight baby [Unknown]
  - Ventricular septal defect [Unknown]
  - Corrected transposition of great vessels [Unknown]
  - Foetal exposure during pregnancy [Recovered/Resolved]
  - Heterotaxia [Unknown]

NARRATIVE: CASE EVENT DATE: 2008
